FAERS Safety Report 25239216 (Version 1)
Quarter: 2025Q2

REPORT INFORMATION
  Report Type: Spontaneous
  Country: US (occurrence: None)
  Receive Date: 20250424
  Receipt Date: 20250424
  Transmission Date: 20250717
  Serious: Yes (Hospitalization)
  Sender: FDA-CTU
  Company Number: None

PATIENT
  Age: 53 Year
  Sex: Female

DRUGS (1)
  1. ATORVASTATIN CALCIUM [Suspect]
     Active Substance: ATORVASTATIN CALCIUM
     Dosage: FREQUENCY : AT BEDTIME;?
     Route: 048
     Dates: end: 20250206

REACTIONS (4)
  - Nausea [None]
  - Vomiting [None]
  - Haematochezia [None]
  - Rhabdomyolysis [None]

NARRATIVE: CASE EVENT DATE: 20250206
